FAERS Safety Report 5830519-8 (Version None)
Quarter: 2008Q3

REPORT INFORMATION
  Report Type: 
  Country: None (occurrence: None)
  Receive Date: 20080801
  Receipt Date: 20070621
  Transmission Date: 20090109
  Serious: No
  Sender: FDA-Public Use
  Company Number: US-BRISTOL-MYERS SQUIBB COMPANY-13822218

PATIENT
  Sex: Male
  Weight: 93 kg

DRUGS (6)
  1. WARFARIN SODIUM [Suspect]
     Indication: ATRIAL FIBRILLATION
     Dates: start: 20060914
  2. METOPROLOL [Concomitant]
  3. LIPITOR [Concomitant]
  4. FLECAINIDE ACETATE [Concomitant]
  5. LISINOPRIL [Concomitant]
  6. AZILECT [Concomitant]

REACTIONS (1)
  - INTERNATIONAL NORMALISED RATIO FLUCTUATION [None]
